FAERS Safety Report 5349623-6 (Version None)
Quarter: 2007Q2

REPORT INFORMATION
  Report Type: 
  Country: None (occurrence: None)
  Receive Date: 20070607
  Receipt Date: 20070515
  Transmission Date: 20071010
  Serious: Yes (Hospitalization)
  Sender: FDA-Public Use
  Company Number: CH-JNJFOC-20070505656

PATIENT
  Age: 79 Year
  Sex: Female

DRUGS (15)
  1. ACETAMINOPHEN AND TRAMADOL HCL [Suspect]
     Indication: PAIN
     Route: 048
     Dates: start: 20061220, end: 20061229
  2. TRANSTEC [Suspect]
     Indication: PAIN
     Route: 062
     Dates: start: 20061220, end: 20070116
  3. CIPROFLOXACIN HYDROCHLORIDE [Suspect]
     Indication: CYSTITIS
     Route: 048
     Dates: start: 20061228, end: 20070105
  4. ELTROXIN [Concomitant]
     Route: 048
  5. TORSEMIDE [Concomitant]
     Route: 048
  6. COSSAR FORTE [Concomitant]
     Route: 048
  7. ASPIRIN [Concomitant]
     Route: 048
  8. SYMFONA N [Concomitant]
     Route: 048
  9. SURMONTIL [Concomitant]
     Route: 048
  10. STILNOX [Concomitant]
     Route: 048
  11. FOSAVANCE [Concomitant]
     Route: 048
  12. DULCOLAX [Concomitant]
     Route: 048
  13. ALLOPURINOL [Concomitant]
     Route: 048
  14. DAFALGAN [Concomitant]
     Route: 048
  15. MORPHINE [Concomitant]
     Route: 065

REACTIONS (2)
  - CHOLESTASIS [None]
  - FALL [None]
